FAERS Safety Report 5501688-4 (Version None)
Quarter: 2007Q4

REPORT INFORMATION
  Report Type: 
  Country: None (occurrence: None)
  Receive Date: 20071026
  Receipt Date: 20071026
  Transmission Date: 20080405
  Serious: Yes (Other)
  Sender: FDA-Public Use
  Company Number: None

PATIENT
  Age: 36 Year
  Sex: Female
  Weight: 68.0396 kg

DRUGS (1)
  1. KETEK [Suspect]
     Indication: PHARYNGITIS STREPTOCOCCAL
     Dosage: ONE TABLET PER DAY   5 DAYS  PO
     Route: 048
     Dates: start: 20060815, end: 20060820

REACTIONS (2)
  - BENIGN HEPATIC NEOPLASM [None]
  - INFECTIOUS MONONUCLEOSIS [None]
